FAERS Safety Report 15975299 (Version 1)
Quarter: 2019Q1

REPORT INFORMATION
  Report Type: Spontaneous
  Country: ES (occurrence: ES)
  Receive Date: 20190218
  Receipt Date: 20190218
  Transmission Date: 20190418
  Serious: Yes (Other)
  Sender: FDA-Public Use
  Company Number: ES-STRIDES ARCOLAB LIMITED-2019SP000703

PATIENT
  Age: 32 Year
  Sex: Male

DRUGS (1)
  1. IBUPROFEN. [Suspect]
     Active Substance: IBUPROFEN
     Indication: INJURY
     Dosage: UNK
     Route: 065

REACTIONS (5)
  - Fixed eruption [Unknown]
  - Penile pain [Unknown]
  - Penile erythema [Unknown]
  - Penile ulceration [Unknown]
  - Toxic skin eruption [Unknown]
